FAERS Safety Report 7014817-0 (Version None)
Quarter: 2010Q3

REPORT INFORMATION
  Report Type: 
  Country: None (occurrence: None)
  Receive Date: 20100927
  Receipt Date: 20100917
  Transmission Date: 20110219
  Serious: Yes (Hospitalization, Other)
  Sender: FDA-Public Use
  Company Number: US-BAYER-201031986NA

PATIENT
  Age: 79 Year
  Sex: Female
  Weight: 61 kg

DRUGS (17)
  1. SORAFENIB [Suspect]
     Indication: MALIGNANT MELANOMA
     Dosage: AS USED: 200-400 MG  UNIT DOSE: 200 MG
     Route: 048
     Dates: start: 20030303, end: 20100823
  2. SORAFENIB [Suspect]
     Dosage: AS USED: 200-400 MG  UNIT DOSE: 200 MG
     Route: 048
     Dates: start: 20100616, end: 20100816
  3. AMIODARONE HCL [Concomitant]
     Route: 048
     Dates: start: 20100728
  4. DILTIAZEM [Concomitant]
     Indication: HYPERTENSION
     Dosage: TOTAL DAILY DOSE: 90 MG  UNIT DOSE: 30 MG
     Route: 048
     Dates: start: 20100719
  5. DILTIAZEM [Concomitant]
     Route: 048
  6. GABAPENTIN [Concomitant]
     Dosage: TOTAL DAILY DOSE: 600 MG
     Route: 048
     Dates: start: 20100728
  7. LIPITOR [Concomitant]
     Indication: HYPERCHOLESTEROLAEMIA
     Dosage: TOTAL DAILY DOSE: 10 MG  UNIT DOSE: 20 MG
     Route: 048
     Dates: start: 20100128
  8. LIPITOR [Concomitant]
     Route: 048
  9. LOPERAMIDE [Concomitant]
     Route: 048
  10. LOVAZA [Concomitant]
     Dosage: TOTAL DAILY DOSE: 1 G
     Route: 048
     Dates: start: 20090708
  11. BENICAR [Concomitant]
     Indication: HYPERTENSION
     Route: 048
  12. BENICAR [Concomitant]
     Dosage: TOTAL DAILY DOSE: 5 MG  UNIT DOSE: 5 MG
     Route: 048
     Dates: start: 20100728
  13. SYNTHROID [Concomitant]
     Dosage: TOTAL DAILY DOSE: 125 ?G  UNIT DOSE: 125 ?G
     Route: 048
     Dates: start: 20090522
  14. COUMADIN [Concomitant]
     Indication: ATRIAL FIBRILLATION
     Dosage: TOTAL DAILY DOSE: 5 MG  UNIT DOSE: 5 MG
     Route: 048
     Dates: start: 20100823
  15. COUMADIN [Concomitant]
     Dosage: UNIT DOSE: 2.5 MG
     Route: 048
     Dates: start: 20100719
  16. AMOXICILLIN [Concomitant]
     Dosage: 4 PILLS ONE HOUR BEFORE DENTAL WORK
     Route: 048
  17. AMIODARONE HYDROCHLORIDE [Concomitant]
     Indication: ATRIAL FIBRILLATION
     Dosage: AS USED: 200-400 MG
     Route: 048

REACTIONS (5)
  - BASAL GANGLIA INFARCTION [None]
  - BREAST CANCER [None]
  - CLOSTRIDIAL INFECTION [None]
  - DEHYDRATION [None]
  - UROSEPSIS [None]
